FAERS Safety Report 18294524 (Version 1)
Quarter: 2020Q3

REPORT INFORMATION
  Report Type: Report from Study
  Country: DE (occurrence: DE)
  Receive Date: 20200922
  Receipt Date: 20200922
  Transmission Date: 20201103
  Serious: Yes (Death)
  Sender: FDA-Public Use
  Company Number: DE-ROCHE-2680041

PATIENT
  Sex: Male
  Weight: 53 kg

DRUGS (6)
  1. PREDNISONE. [Suspect]
     Active Substance: PREDNISONE
     Indication: POST TRANSPLANT LYMPHOPROLIFERATIVE DISORDER
     Route: 048
     Dates: start: 20200103, end: 20200127
  2. VINCRISTINE [Suspect]
     Active Substance: VINCRISTINE
     Indication: POST TRANSPLANT LYMPHOPROLIFERATIVE DISORDER
     Route: 042
     Dates: start: 20200103, end: 20200127
  3. PROGRAF [Concomitant]
     Active Substance: TACROLIMUS
     Dates: start: 2009, end: 20200403
  4. RITUXIMAB. [Suspect]
     Active Substance: RITUXIMAB
     Indication: POST TRANSPLANT LYMPHOPROLIFERATIVE DISORDER
     Route: 058
     Dates: start: 20191210, end: 20200123
  5. ADRIAMYCIN [Suspect]
     Active Substance: DOXORUBICIN HYDROCHLORIDE
     Indication: POST TRANSPLANT LYMPHOPROLIFERATIVE DISORDER
     Route: 042
     Dates: start: 20200103, end: 20200127
  6. CYCLOPHOSPHAMIDE. [Suspect]
     Active Substance: CYCLOPHOSPHAMIDE
     Indication: POST TRANSPLANT LYMPHOPROLIFERATIVE DISORDER
     Route: 042
     Dates: start: 20200103, end: 20200127

REACTIONS (1)
  - Liver abscess [Fatal]

NARRATIVE: CASE EVENT DATE: 20200323
